FAERS Safety Report 6892681-8 (Version None)
Quarter: 2010Q3

REPORT INFORMATION
  Report Type: 
  Country: None (occurrence: None)
  Receive Date: 20100731
  Receipt Date: 20080816
  Transmission Date: 20110219
  Serious: Yes (Hospitalization, Other)
  Sender: FDA-Public Use
  Company Number: US-PFIZER INC-2008062192

PATIENT
  Sex: Male
  Weight: 75 kg

DRUGS (14)
  1. GABAPENTIN [Suspect]
     Indication: SPINAL COLUMN STENOSIS
     Route: 048
  2. LASIX [Concomitant]
  3. TAMSULOSIN HCL [Concomitant]
  4. VANCOMYCIN [Concomitant]
  5. ACETAMINOPHEN [Concomitant]
  6. PRAVACHOL [Concomitant]
  7. ACETYLSALICYLIC ACID SRT [Concomitant]
  8. PAXIL [Concomitant]
  9. DOCUSATE [Concomitant]
  10. MORPHINE [Concomitant]
  11. PRILOSEC [Concomitant]
  12. ATENOLOL [Concomitant]
  13. LISINOPRIL [Concomitant]
  14. HEPARIN [Concomitant]

REACTIONS (3)
  - BLOOD CALCIUM DECREASED [None]
  - DYSKINESIA [None]
  - RENAL FAILURE ACUTE [None]
